FAERS Safety Report 4755952-7 (Version None)
Quarter: 2005Q3

REPORT INFORMATION
  Report Type: 
  Country: None (occurrence: None)
  Receive Date: 20050826
  Receipt Date: 20041013
  Transmission Date: 20060218
  Serious: Yes (Other)
  Sender: FDA-Public Use
  Company Number: KII-2002-0004407

PATIENT
  Sex: Female

DRUGS (2)
  1. OXYCONTIN [Suspect]
     Dosage: 80 MG, Q12H
  2. ALCOHOL (ETHANOL) [Suspect]
     Indication: DRUG USE FOR UNKNOWN INDICATION

REACTIONS (1)
  - POLYSUBSTANCE ABUSE [None]
